FAERS Safety Report 22615819 (Version 1)
Quarter: 2023Q2

REPORT INFORMATION
  Report Type: Spontaneous
  Country: US (occurrence: US)
  Receive Date: 20230619
  Receipt Date: 20230619
  Transmission Date: 20230721
  Serious: No
  Sender: FDA-Public Use
  Company Number: US-INSUD PHARMA-2306US03779

PATIENT

DRUGS (1)
  1. SLYND [Suspect]
     Active Substance: DROSPIRENONE
     Indication: Abnormal uterine bleeding
     Dosage: UNK
     Route: 048

REACTIONS (2)
  - Intermenstrual bleeding [Unknown]
  - Off label use [Unknown]
